FAERS Safety Report 10271895 (Version 7)
Quarter: 2014Q4

REPORT INFORMATION
  Report Type: Report from Study
  Country: GB (occurrence: GB)
  Receive Date: 20140702
  Receipt Date: 20141117
  Transmission Date: 20150528
  Serious: Yes (Hospitalization, Other)
  Sender: FDA-Public Use
  Company Number: PHHO2014GB008316

PATIENT
  Age: 1 Year
  Sex: Male
  Weight: 10.4 kg

DRUGS (2)
  1. ACZ885 [Suspect]
     Active Substance: CANAKINUMAB
     Indication: CRYOPYRIN ASSOCIATED PERIODIC SYNDROME
     Dosage: 20.8 MG, (2 MG/KG, 8 WEEKLY)
     Route: 058
     Dates: start: 20131025
  2. ANTIBIOTICS [Concomitant]
     Active Substance: UNSPECIFIED INGREDIENT
     Indication: WOUND

REACTIONS (2)
  - Wound infection staphylococcal [Recovered/Resolved]
  - Cryptorchism [Recovered/Resolved with Sequelae]

NARRATIVE: CASE EVENT DATE: 20140609
